FAERS Safety Report 20467730 (Version 4)
Quarter: 2022Q2

REPORT INFORMATION
  Report Type: Spontaneous
  Country: US (occurrence: US)
  Receive Date: 20220214
  Receipt Date: 20220608
  Transmission Date: 20220720
  Serious: Yes (Other)
  Sender: FDA-Public Use
  Company Number: US-AUROBINDO-AUR-APL-2022-003428

PATIENT
  Age: 69 Year
  Sex: Male

DRUGS (10)
  1. AMIODARONE HYDROCHLORIDE [Suspect]
     Active Substance: AMIODARONE HYDROCHLORIDE
     Indication: Atrial fibrillation
     Dosage: 200 MILLIGRAM, ONCE A DAY (DAILY)
     Route: 048
     Dates: start: 2020
  2. AMIODARONE HYDROCHLORIDE [Suspect]
     Active Substance: AMIODARONE HYDROCHLORIDE
     Dosage: 100 MILLIGRAM, ONCE A DAY
     Route: 048
  3. SPIRONOLACTONE [Suspect]
     Active Substance: SPIRONOLACTONE
     Indication: Cardiac failure
     Dosage: UNK, ONCE A DAY
     Route: 048
     Dates: start: 20210830
  4. SPIRONOLACTONE [Suspect]
     Active Substance: SPIRONOLACTONE
     Dosage: 1 DOSAGE FORM, ONCE A DAY
     Route: 065
  5. SPIRONOLACTONE [Suspect]
     Active Substance: SPIRONOLACTONE
     Dosage: 0.5 MILLIGRAM, ONCE A DAY
     Route: 048
  6. BUMETANIDE [Suspect]
     Active Substance: BUMETANIDE
     Indication: Cardiac failure
     Dosage: UNK,TAKES AS NEEDED
     Route: 048
  7. BUMETANIDE [Suspect]
     Active Substance: BUMETANIDE
     Indication: Weight increased
     Dosage: 1 DOSAGE FORM, ONCE A DAY
     Route: 048
     Dates: start: 20210830
  8. ENTRESTO [Suspect]
     Active Substance: SACUBITRIL\VALSARTAN
     Indication: Cardiac failure
     Dosage: 49.51 MILLIGRAM, TWO TIMES A DAY
     Route: 048
  9. ENTRESTO [Suspect]
     Active Substance: SACUBITRIL\VALSARTAN
     Dosage: 24.26 MILLIGRAM, TWO TIMES A DAY
     Route: 048
     Dates: start: 20210830
  10. ENTRESTO [Suspect]
     Active Substance: SACUBITRIL\VALSARTAN
     Dosage: 97.103 MILLIGRAM, TWO TIMES A DAY (97.103 MG ONE HALF TABLET TWICE A DAY)
     Route: 048
     Dates: start: 202203

REACTIONS (3)
  - Heart rate decreased [Recovered/Resolved]
  - Blood creatinine increased [Unknown]
  - Hypotension [Recovered/Resolved]

NARRATIVE: CASE EVENT DATE: 20210901
